FAERS Safety Report 10280077 (Version 1)
Quarter: 2014Q3

REPORT INFORMATION
  Report Type: Spontaneous
  Country: US (occurrence: None)
  Receive Date: 20140701
  Receipt Date: 20140701
  Transmission Date: 20150326
  Serious: Yes (Disabling)
  Sender: FDA-Public Use
  Company Number: None

PATIENT
  Age: 57 Year
  Sex: Female
  Weight: 58.97 kg

DRUGS (1)
  1. ALENDRONATE [Suspect]
     Active Substance: ALENDRONATE SODIUM
     Indication: OSTEOPENIA
     Dosage: 1 PILL  ONE DAY A WEEK  TAKEN BY MOUTH
     Route: 048

REACTIONS (6)
  - Feeling abnormal [None]
  - No therapeutic response [None]
  - Fear [None]
  - Muscle tone disorder [None]
  - Arthralgia [None]
  - Myalgia [None]
